FAERS Safety Report 8960831 (Version 1)
Quarter: 2012Q4

REPORT INFORMATION
  Report Type: 
  Country: US (occurrence: US)
  Receive Date: 20121213
  Receipt Date: 20121213
  Transmission Date: 20130627
  Serious: Yes (Other)
  Sender: FDA-Public Use
  Company Number: US-AMGEN-USASP2012078936

PATIENT
  Age: 88 Year
  Sex: Male

DRUGS (2)
  1. PROLIA [Suspect]
     Indication: OSTEOPOROSIS
     Dosage: UNK
     Dates: start: 20120716
  2. ANTINEOPLASTIC AGENTS [Concomitant]
     Indication: PROSTATE CANCER

REACTIONS (3)
  - Femur fracture [Unknown]
  - Fall [Unknown]
  - Mobility decreased [Unknown]
